FAERS Safety Report 18792226 (Version 11)
Quarter: 2023Q1

REPORT INFORMATION
  Report Type: Spontaneous
  Country: CZ (occurrence: CZ)
  Receive Date: 20210126
  Receipt Date: 20230102
  Transmission Date: 20230417
  Serious: Yes (Hospitalization, Other)
  Sender: FDA-Public Use
  Company Number: CZ-002147023-NVSC2021CZ004535

PATIENT
  Age: 45 Year
  Sex: Male

DRUGS (19)
  1. LEVETIRACETAM [Suspect]
     Active Substance: LEVETIRACETAM
     Indication: Psychogenic seizure
     Dosage: UNK
  2. LEVETIRACETAM [Suspect]
     Active Substance: LEVETIRACETAM
     Indication: Off label use
  3. LEVETIRACETAM [Suspect]
     Active Substance: LEVETIRACETAM
     Indication: Depression
  4. ESLICARBAZEPINE [Suspect]
     Active Substance: ESLICARBAZEPINE
     Indication: Epilepsy
     Dosage: UNK
  5. ESLICARBAZEPINE [Suspect]
     Active Substance: ESLICARBAZEPINE
     Indication: Psychogenic seizure
  6. VALPROATE [Suspect]
     Active Substance: VALPROIC ACID
     Indication: Epilepsy
     Dosage: UNK
  7. VALPROATE [Suspect]
     Active Substance: VALPROIC ACID
     Indication: Depression
  8. VALPROATE [Suspect]
     Active Substance: VALPROIC ACID
     Indication: Seizure
  9. VALPROATE [Suspect]
     Active Substance: VALPROIC ACID
     Indication: Psychogenic seizure
  10. VALPROATE [Suspect]
     Active Substance: VALPROIC ACID
     Indication: Epilepsy
  11. CARBAMAZEPINE [Suspect]
     Active Substance: CARBAMAZEPINE
     Indication: Epilepsy
     Dosage: UNK
     Route: 065
  12. CARBAMAZEPINE [Suspect]
     Active Substance: CARBAMAZEPINE
     Indication: Epilepsy
  13. CARBAMAZEPINE [Suspect]
     Active Substance: CARBAMAZEPINE
     Indication: Psychogenic seizure
  14. TOPIRAMATE [Suspect]
     Active Substance: TOPIRAMATE
     Indication: Epilepsy
     Dosage: 200 MILLIGRAM, ONCE DAILY (QD)
     Route: 048
  15. TOPIRAMATE [Suspect]
     Active Substance: TOPIRAMATE
     Indication: Psychogenic seizure
  16. LAMOTRIGINE [Suspect]
     Active Substance: LAMOTRIGINE
     Indication: Seizure
     Dosage: 400 MILLIGRAM, ONCE DAILY (QD)
  17. LAMOTRIGINE [Suspect]
     Active Substance: LAMOTRIGINE
     Indication: Drug therapy
  18. BRIVARACETAM [Concomitant]
     Active Substance: BRIVARACETAM
     Indication: Epilepsy
     Dosage: 25 MILLIGRAM, 2X/DAY (BID)
     Route: 065
  19. BRIVARACETAM [Concomitant]
     Active Substance: BRIVARACETAM
     Indication: Psychogenic seizure
     Dosage: 100 MILLIGRAM, ONCE DAILY (QD)
     Route: 065

REACTIONS (10)
  - Erectile dysfunction [Unknown]
  - Psychogenic seizure [Recovered/Resolved]
  - Seizure [Not Recovered/Not Resolved]
  - Condition aggravated [Recovered/Resolved]
  - Weight increased [Unknown]
  - Thinking abnormal [Unknown]
  - Psychiatric symptom [Unknown]
  - Drug ineffective for unapproved indication [Unknown]
  - Drug intolerance [Unknown]
  - Off label use [Unknown]
